FAERS Safety Report 5106987-6 (Version None)
Quarter: 2006Q3

REPORT INFORMATION
  Report Type: 
  Country: None (occurrence: None)
  Receive Date: 20060913
  Receipt Date: 20060905
  Transmission Date: 20061208
  Serious: Yes (Hospitalization)
  Sender: FDA-Public Use
  Company Number: 2006S1000215

PATIENT
  Age: 36 Year
  Sex: Male

DRUGS (1)
  1. ACITRETIN [Suspect]
     Indication: PSORIASIS
     Dosage: UNK; PO
     Route: 048
     Dates: start: 20040119, end: 20040223

REACTIONS (3)
  - DIABETES MELLITUS INSULIN-DEPENDENT [None]
  - VISION BLURRED [None]
  - VISUAL DISTURBANCE [None]
